FAERS Safety Report 6298726-0 (Version None)
Quarter: 2009Q3

REPORT INFORMATION
  Report Type: 
  Country: None (occurrence: None)
  Receive Date: 20090806
  Receipt Date: 20070627
  Transmission Date: 20100115
  Serious: Yes (Other)
  Sender: FDA-Public Use
  Company Number: US-ASTRAZENECA-2006UW22012

PATIENT
  Age: 42 Year
  Sex: Male
  Weight: 118.1 kg

DRUGS (17)
  1. SEROQUEL [Suspect]
     Indication: SCHIZOPHRENIA
     Dosage: 100 MG TO 3200 MG
     Route: 048
     Dates: start: 19991103
  2. SEROQUEL [Suspect]
     Indication: BIPOLAR I DISORDER
     Dosage: 100 MG TO 3200 MG
     Route: 048
     Dates: start: 19991103
  3. SEROQUEL [Suspect]
     Route: 048
     Dates: start: 20040101
  4. SEROQUEL [Suspect]
     Route: 048
     Dates: start: 20040101
  5. ABILIFY [Concomitant]
     Dates: start: 20060101
  6. GEODON [Concomitant]
  7. HALDOL [Concomitant]
  8. RISPERDAL [Concomitant]
  9. STELAZINE [Concomitant]
  10. THORAZINE [Concomitant]
  11. OLANZAPINE [Concomitant]
     Indication: SLEEP DISORDER
     Dosage: 5 MG TO 10 MG
     Route: 048
     Dates: start: 19980123
  12. OLANZAPINE [Concomitant]
     Indication: SCHIZOPHRENIA
     Dosage: 5 MG TO 10 MG
     Route: 048
     Dates: start: 19980123
  13. THIORIDAZINE HCL [Concomitant]
     Dosage: 100 MG TO 200 MG
     Route: 048
     Dates: start: 19960717
  14. FLUOXETINE [Concomitant]
     Indication: SLEEP DISORDER
     Dosage: 40 MG TO 90 MG
     Route: 048
     Dates: start: 19980123
  15. FLUOXETINE [Concomitant]
     Indication: SCHIZOPHRENIA
     Dosage: 40 MG TO 90 MG
     Route: 048
     Dates: start: 19980123
  16. SERTRALINE [Concomitant]
     Dosage: 100 MG 1/2 TAB WITH LUNCH
     Dates: start: 19950725
  17. METFORMIN [Concomitant]
     Indication: DIABETES MELLITUS
     Dosage: 1000 MG TO 2000 MG
     Route: 048
     Dates: start: 20000928

REACTIONS (9)
  - CONSTIPATION [None]
  - DIABETES MELLITUS [None]
  - DIABETES MELLITUS INADEQUATE CONTROL [None]
  - DIABETIC NEUROPATHY [None]
  - DIABETIC ULCER [None]
  - HYPERGLYCAEMIA [None]
  - NEUROGENIC BLADDER [None]
  - NEUROPATHY PERIPHERAL [None]
  - TYPE 2 DIABETES MELLITUS [None]
